FAERS Safety Report 5741683-3 (Version None)
Quarter: 2008Q2

REPORT INFORMATION
  Report Type: 
  Country: None (occurrence: None)
  Receive Date: 20080519
  Receipt Date: 20070425
  Transmission Date: 20081010
  Serious: Yes (Other)
  Sender: FDA-Public Use
  Company Number: US-BAYER-US-2007-014887

PATIENT

DRUGS (5)
  1. FLUDARA [Suspect]
     Indication: BONE MARROW CONDITIONING REGIMEN
     Route: 042
  2. BUSULFAN [Suspect]
     Indication: BONE MARROW CONDITIONING REGIMEN
  3. CAMPATH [Concomitant]
     Indication: BONE MARROW CONDITIONING REGIMEN
  4. TACROLIMUS [Concomitant]
     Indication: GRAFT VERSUS HOST DISEASE
  5. METHOTREXATE [Concomitant]
     Indication: GRAFT VERSUS HOST DISEASE

REACTIONS (1)
  - VIRAL HAEMORRHAGIC CYSTITIS [None]
